FAERS Safety Report 15277583 (Version 1)
Quarter: 2018Q3

REPORT INFORMATION
  Report Type: Spontaneous
  Country: US (occurrence: US)
  Receive Date: 20180814
  Receipt Date: 20180814
  Transmission Date: 20181010
  Serious: No
  Sender: FDA-Public Use
  Company Number: US-AMGEN-USASP2018106764

PATIENT
  Age: 49 Year
  Sex: Female

DRUGS (6)
  1. SIMPONI [Concomitant]
     Active Substance: GOLIMUMAB
     Dosage: UNK
     Route: 065
  2. METHOTREXATE. [Concomitant]
     Active Substance: METHOTREXATE
     Dosage: UNK
  3. ENBREL [Suspect]
     Active Substance: ETANERCEPT
     Indication: PSORIATIC ARTHROPATHY
     Dosage: UNK
     Route: 065
     Dates: start: 201801, end: 201804
  4. COSENTYX [Concomitant]
     Active Substance: SECUKINUMAB
     Dosage: UNK
     Route: 065
  5. XELJANZ XR [Concomitant]
     Active Substance: TOFACITINIB CITRATE
     Dosage: 11 MG, QD
     Route: 048
  6. PLAQUENIL [Concomitant]
     Active Substance: HYDROXYCHLOROQUINE SULFATE
     Dosage: UNK
     Route: 065

REACTIONS (1)
  - Therapy non-responder [Unknown]

NARRATIVE: CASE EVENT DATE: 2018
